FAERS Safety Report 4353908-X (Version None)
Quarter: 2004Q2

REPORT INFORMATION
  Report Type: 
  Country: None (occurrence: None)
  Receive Date: 20040503
  Receipt Date: 20040422
  Transmission Date: 20050107
  Serious: No
  Sender: FDA-Public Use
  Company Number: 04H-087-0258433-00

PATIENT

DRUGS (11)
  1. LEUCOVORIN CALCIUM [Suspect]
     Indication: CHEMOTHERAPY
     Dosage: 125 MG/BODY/DAY, DAYS 1-4, EVERY 28 DAYS, INTRAVENOUS
     Route: 042
  2. DOCETAXEL [Suspect]
     Indication: CHEMOTHERAPY
     Dosage: 48 MG/M2, ON DAY 1, EVERY 28 DAYS, INTRAVENOUS
     Route: 042
  3. CISPLATIN [Suspect]
     Indication: CHEMOTHERAPY
     Dosage: 24 MG/M2, ON DAYS 1-4, EVERY 28 DAYS, INTRAVENOUS
     Route: 042
  4. FLUOROURACIL [Suspect]
     Indication: CHEMOTHERAPY
     Dosage: 560 MG/M2, ON DAYS 1-4, EVERY 28 DAYS, INTRAVENOUS
     Route: 042
  5. SODIUM CHLORIDE INJ [Concomitant]
  6. DEXAMETHASONE [Concomitant]
  7. AZASETRON [Concomitant]
  8. HYDROCORTISONE [Concomitant]
  9. HALOPERIDOL [Concomitant]
  10. CEPHALOSPORINS AND RELATED SUBSTANCES [Concomitant]
  11. RED BLOOD CELLS [Concomitant]

REACTIONS (1)
  - ANAEMIA [None]
